FAERS Safety Report 12525183 (Version 1)
Quarter: 2016Q3

REPORT INFORMATION
  Report Type: Spontaneous
  Country: US (occurrence: US)
  Receive Date: 20160704
  Receipt Date: 20160704
  Transmission Date: 20161109
  Serious: Yes (Other)
  Sender: FDA-Public Use
  Company Number: US-BRISTOL-MYERS SQUIBB COMPANY-BMS-2016-051425

PATIENT
  Sex: Male
  Weight: 69.84 kg

DRUGS (1)
  1. COUMADIN [Suspect]
     Active Substance: WARFARIN SODIUM
     Indication: TRANSIENT ISCHAEMIC ATTACK
     Route: 065

REACTIONS (7)
  - Body height decreased [Unknown]
  - Cardiac disorder [Unknown]
  - Prostatic haemorrhage [Recovering/Resolving]
  - Cardiac ablation [Unknown]
  - Medical device implantation [Unknown]
  - Atrial fibrillation [Unknown]
  - Cerebrovascular accident [Unknown]
